FAERS Safety Report 8598188-4 (Version None)
Quarter: 2012Q3

REPORT INFORMATION
  Report Type: 
  Country: None (occurrence: None)
  Receive Date: 20120816
  Receipt Date: 20120808
  Transmission Date: 20120928
  Serious: Yes (Other)
  Sender: FDA-Public Use
  Company Number: PHHY2011CA75190

PATIENT
  Sex: Female
  Weight: 77.098 kg

DRUGS (1)
  1. GILENYA [Suspect]
     Indication: RELAPSING-REMITTING MULTIPLE SCLEROSIS
     Dosage: 0.5 MG, QD
     Route: 048
     Dates: start: 20110818

REACTIONS (9)
  - LYMPHOCYTE COUNT DECREASED [None]
  - SENSORY LOSS [None]
  - MEMORY IMPAIRMENT [None]
  - OPTIC ATROPHY [None]
  - VISUAL IMPAIRMENT [None]
  - BLADDER DYSFUNCTION [None]
  - FATIGUE [None]
  - DIZZINESS [None]
  - WEIGHT DECREASED [None]
